FAERS Safety Report 7274773-7 (Version None)
Quarter: 2011Q1

REPORT INFORMATION
  Report Type: 
  Country: None (occurrence: None)
  Receive Date: 20110202
  Receipt Date: 20110202
  Transmission Date: 20110831
  Serious: No
  Sender: FDA-Public Use
  Company Number: None

PATIENT
  Age: 12 Year
  Sex: Male

DRUGS (1)
  1. BUPROPION HCL [Suspect]
     Dosage: 150MG  Q AM PO
     Route: 048

REACTIONS (4)
  - AGGRESSION [None]
  - ANGER [None]
  - IRRITABILITY [None]
  - RASH [None]
